FAERS Safety Report 5264608-6 (Version None)
Quarter: 2007Q1

REPORT INFORMATION
  Report Type: 
  Country: None (occurrence: None)
  Receive Date: 20061122
  Receipt Date: 20060111
  Transmission Date: 20070707
  Serious: Yes (Death)
  Sender: FDA-Public Use
  Company Number: 2006MP000061

PATIENT
  Age: 63 Year
  Sex: Male
  Weight: 81.6475 kg

DRUGS (5)
  1. GLIADEL [Suspect]
     Indication: GLIOBLASTOMA MULTIFORME
     Dosage: X1; ICER
     Dates: start: 20041201
  2. GLIADEL [Suspect]
     Indication: GLIOBLASTOMA MULTIFORME
     Dosage: X1; ICER
     Dates: start: 20050920
  3. PREDNISONE [Concomitant]
  4. DEXAMETHASONE [Concomitant]
  5. PHENYTOIN [Concomitant]

REACTIONS (1)
  - CONDITION AGGRAVATED [None]
